FAERS Safety Report 6656975-3 (Version None)
Quarter: 2010Q1

REPORT INFORMATION
  Report Type: 
  Country: None (occurrence: None)
  Receive Date: 20100330
  Receipt Date: 20100322
  Transmission Date: 20100710
  Serious: Yes (Other)
  Sender: FDA-Public Use
  Company Number: US-BIOGENIDEC-2010BI009761

PATIENT
  Age: 39 Year
  Sex: Female

DRUGS (1)
  1. AVONEX [Suspect]
     Indication: MULTIPLE SCLEROSIS
     Route: 030
     Dates: start: 20050425

REACTIONS (6)
  - BLADDER DISORDER [None]
  - BLINDNESS [None]
  - CONVULSION [None]
  - FALL [None]
  - HEAD INJURY [None]
  - RENAL FAILURE ACUTE [None]
